FAERS Safety Report 12519933 (Version 2)
Quarter: 2016Q3

REPORT INFORMATION
  Report Type: Spontaneous
  Country: US (occurrence: US)
  Receive Date: 20160630
  Receipt Date: 20160722
  Transmission Date: 20161109
  Serious: No
  Sender: FDA-Public Use
  Company Number: US-PFIZER INC-2016319840

PATIENT
  Age: 15 Year
  Sex: Female

DRUGS (10)
  1. NEURONTIN [Suspect]
     Active Substance: GABAPENTIN
     Indication: MOOD ALTERED
  2. DEPLIN [Concomitant]
     Active Substance: LEVOMEFOLATE CALCIUM
     Dosage: 15 MG, 1X/DAY (1PM)
  3. NEURONTIN [Suspect]
     Active Substance: GABAPENTIN
     Indication: PSYCHOTIC DISORDER
     Dosage: 600 MG, 2X/DAY (2 1/2 AM 3PM)
     Dates: start: 2000
  4. CARBAMAZEPINE. [Concomitant]
     Active Substance: CARBAMAZEPINE
     Dosage: 200 MG, 2X/DAY (1 1/2 AM 2PM)
     Dates: start: 2001
  5. LITHIUM. [Concomitant]
     Active Substance: LITHIUM
     Dosage: 300 UNK, 2X/DAY (2AM 1PM)
  6. FLUOXETINE [Concomitant]
     Active Substance: FLUOXETINE HYDROCHLORIDE
     Dosage: 5 MG, UNK (10MG 1/2 TAB 1AM)
     Dates: start: 20160128
  7. LITHIUM. [Concomitant]
     Active Substance: LITHIUM
     Dosage: 150MG 1X/DAY (1AM)
     Dates: start: 2001
  8. LAMOTRIGINE. [Concomitant]
     Active Substance: LAMOTRIGINE
     Dosage: 200 MG,1X/DAY (1 AM)
     Dates: start: 2003
  9. CLONAZEPAM. [Concomitant]
     Active Substance: CLONAZEPAM
     Dosage: 2 MG, 1X/DAY (BEDTIME)
     Dates: start: 2015
  10. PROPRANOLOL [Concomitant]
     Active Substance: PROPRANOLOL\PROPRANOLOL HYDROCHLORIDE
     Dosage: 10 MG, 3X/DAY (1AM 1NOON 1PM)
     Dates: start: 2013

REACTIONS (1)
  - Product use issue [Unknown]

NARRATIVE: CASE EVENT DATE: 2000
